FAERS Safety Report 9009387 (Version 1)
Quarter: 2013Q1

REPORT INFORMATION
  Report Type: Spontaneous
  Country: FR (occurrence: FR)
  Receive Date: 20130111
  Receipt Date: 20130111
  Transmission Date: 20140127
  Serious: Yes (Death, Hospitalization)
  Sender: FDA-Public Use
  Company Number: FR-B.I. PHARMACEUTICALS,INC./RIDGEFIELD-2013-FF-00048FF

PATIENT
  Age: 79 Year
  Sex: Female

DRUGS (7)
  1. PRADAXA [Suspect]
     Indication: ATRIAL FIBRILLATION
     Dosage: 300 MG
     Route: 048
     Dates: start: 20121015
  2. DIGOXINE [Concomitant]
     Dosage: 0.1429 MG
     Route: 048
  3. ISOPTINE [Concomitant]
     Dosage: 240 MG
     Route: 048
  4. LASILIX [Concomitant]
     Dosage: 40 MG
     Route: 048
  5. KALEORID [Concomitant]
     Dosage: 600 MG
     Route: 048
  6. TOLEXINE [Concomitant]
     Indication: PEMPHIGOID
     Dosage: 100 MG
     Route: 048
  7. DERMOVAL [Concomitant]
     Indication: PEMPHIGOID

REACTIONS (1)
  - Acute myeloid leukaemia [Fatal]
